FAERS Safety Report 13503643 (Version 2)
Quarter: 2018Q2

REPORT INFORMATION
  Report Type: Report from Study
  Country: None (occurrence: US)
  Receive Date: 20170502
  Receipt Date: 20180615
  Transmission Date: 20180711
  Serious: Yes (Hospitalization, Other)
  Sender: FDA-Public Use
  Company Number: US-ABBVIE-17K-163-1954486-00

PATIENT
  Sex: Female

DRUGS (1)
  1. HUMIRA [Suspect]
     Active Substance: ADALIMUMAB
     Indication: PSORIATIC ARTHROPATHY
     Route: 058

REACTIONS (4)
  - Uterine enlargement [Recovered/Resolved]
  - Psoriatic arthropathy [Recovered/Resolved]
  - Psoriatic arthropathy [Not Recovered/Not Resolved]
  - Uterine leiomyoma [Recovered/Resolved]
